FAERS Safety Report 8305005-6 (Version None)
Quarter: 2012Q2

REPORT INFORMATION
  Report Type: 
  Country: None (occurrence: None)
  Receive Date: 20120423
  Receipt Date: 20120412
  Transmission Date: 20120825
  Serious: Yes (Hospitalization)
  Sender: FDA-Public Use
  Company Number: BR-ASTRAZENECA-2012SE24355

PATIENT
  Sex: Male

DRUGS (4)
  1. BRILINTA [Suspect]
     Route: 048
     Dates: start: 20120206, end: 20120402
  2. ASPIRIN [Concomitant]
  3. PROPRANOLOL [Suspect]
  4. SIMVASTATIN [Concomitant]

REACTIONS (4)
  - DYSPNOEA [None]
  - DRUG INEFFECTIVE [None]
  - LUNG DISORDER [None]
  - ABDOMINAL PAIN [None]
